FAERS Safety Report 10301130 (Version 1)
Quarter: 2014Q3

REPORT INFORMATION
  Report Type: Spontaneous
  Country: US (occurrence: None)
  Receive Date: 20140709
  Receipt Date: 20140709
  Transmission Date: 20150326
  Serious: No
  Sender: FDA-Public Use
  Company Number: None

PATIENT
  Age: 78 Year
  Sex: Female
  Weight: 63.5 kg

DRUGS (10)
  1. OXYTROL FOR WOMEN [Suspect]
     Active Substance: OXYBUTYNIN
     Indication: HYPERTONIC BLADDER
     Dosage: 4 PATCHS PER BOX 1 PATCH EVERY 4 DAYS, 1 PATCH EVERY 4 DAYS, PATCH ON SKIN
     Dates: start: 20140111, end: 20140509
  2. ALENDRORATE [Concomitant]
  3. ATENOLOL. [Concomitant]
     Active Substance: ATENOLOL
  4. FISH OIL [Concomitant]
     Active Substance: FISH OIL
  5. LOSARTAN [Concomitant]
     Active Substance: LOSARTAN
  6. BCOMPLEX [Concomitant]
  7. VITAMIN D [Concomitant]
     Active Substance: CHOLECALCIFEROL
  8. VITAMIN E [Concomitant]
     Active Substance: .ALPHA.-TOCOPHEROL
  9. VIOISCAL [Concomitant]
  10. PRENATAL VIT [Concomitant]

REACTIONS (6)
  - Constipation [None]
  - Dysuria [None]
  - Dehydration [None]
  - Urine output decreased [None]
  - Chromaturia [None]
  - Dry mouth [None]
